FAERS Safety Report 11893580 (Version 6)
Quarter: 2016Q4

REPORT INFORMATION
  Report Type: Report from Study
  Country: US (occurrence: US)
  Receive Date: 20160106
  Receipt Date: 20161227
  Transmission Date: 20170206
  Serious: Yes (Hospitalization)
  Sender: FDA-Public Use
  Company Number: US-ACTELION-A-US2015-128704

PATIENT
  Age: 30 Year
  Sex: Female

DRUGS (4)
  1. SILDENAFIL. [Concomitant]
     Active Substance: SILDENAFIL
  2. WARFARIN [Concomitant]
     Active Substance: WARFARIN
  3. VELETRI [Suspect]
     Active Substance: EPOPROSTENOL
     Indication: PULMONARY ARTERIAL HYPERTENSION
     Dosage: 7.6 NG/KG/MIN
     Route: 042
     Dates: start: 20151123
  4. OPSUMIT [Suspect]
     Active Substance: MACITENTAN
     Indication: PULMONARY ARTERIAL HYPERTENSION
     Dosage: 10 MG, QD
     Route: 048
     Dates: start: 20150404

REACTIONS (11)
  - Fluid overload [Unknown]
  - Dermatitis contact [Unknown]
  - Seizure [Unknown]
  - Malaise [Unknown]
  - Pain in jaw [Unknown]
  - Fluid retention [Recovering/Resolving]
  - Dyspnoea [Unknown]
  - Epistaxis [Unknown]
  - Oedema [Recovering/Resolving]
  - Catheter site pruritus [Unknown]
  - Fatigue [Unknown]

NARRATIVE: CASE EVENT DATE: 20151227
